FAERS Safety Report 7158407-8 (Version None)
Quarter: 2010Q4

REPORT INFORMATION
  Report Type: 
  Country: None (occurrence: None)
  Receive Date: 20101214
  Receipt Date: 20100604
  Transmission Date: 20110411
  Serious: No
  Sender: FDA-Public Use
  Company Number: US-ASTRAZENECA-2010SE25919

PATIENT
  Age: 30532 Day
  Sex: Female
  Weight: 62.6 kg

DRUGS (1)
  1. CRESTOR [Suspect]
     Route: 048
     Dates: start: 20100527, end: 20100603

REACTIONS (3)
  - FEELING ABNORMAL [None]
  - JOINT SWELLING [None]
  - MYALGIA [None]
